FAERS Safety Report 4707529-7 (Version None)
Quarter: 2005Q3

REPORT INFORMATION
  Report Type: 
  Country: None (occurrence: None)
  Receive Date: 20050701
  Receipt Date: 20050620
  Transmission Date: 20060218
  Serious: Yes (Other)
  Sender: FDA-Public Use
  Company Number: 2005091359

PATIENT
  Sex: Female

DRUGS (3)
  1. ESTRADIOL [Suspect]
     Indication: ILL-DEFINED DISORDER
     Dosage: 1 MG (1 MG, DAILY INTERVAL: EVERY DAY), ORAL
     Route: 048
     Dates: start: 20020101
  2. DOTHIEPIN HYDROCHLORIDE [Concomitant]
  3. ACID (ACETYLSALICYLIC  ACID (ACETYLSALICYLIC ACID) [Concomitant]

REACTIONS (5)
  - ALANINE AMINOTRANSFERASE INCREASED [None]
  - BLOOD ALBUMIN DECREASED [None]
  - BLOOD ALKALINE PHOSPHATASE INCREASED [None]
  - CEREBROVASCULAR ACCIDENT [None]
  - GAMMA-GLUTAMYLTRANSFERASE INCREASED [None]
